FAERS Safety Report 6555369-9 (Version None)
Quarter: 2010Q1

REPORT INFORMATION
  Report Type: 
  Country: None (occurrence: None)
  Receive Date: 20100128
  Receipt Date: 20090722
  Transmission Date: 20100710
  Serious: No
  Sender: FDA-Public Use
  Company Number: A0799733A

PATIENT
  Sex: Male

DRUGS (2)
  1. WELLBUTRIN [Suspect]
     Route: 048
  2. UNKNOWN [Concomitant]

REACTIONS (5)
  - ELEVATED MOOD [None]
  - ENERGY INCREASED [None]
  - ILL-DEFINED DISORDER [None]
  - MOOD ALTERED [None]
  - TREATMENT NONCOMPLIANCE [None]
